FAERS Safety Report 5705381-4 (Version None)
Quarter: 2008Q2

REPORT INFORMATION
  Report Type: 
  Country: None (occurrence: None)
  Receive Date: 20080415
  Receipt Date: 20080403
  Transmission Date: 20081010
  Serious: Yes (Life-Threatening, Hospitalization)
  Sender: FDA-Public Use
  Company Number: FR-BRISTOL-MYERS SQUIBB COMPANY-14146567

PATIENT
  Age: 69 Year
  Sex: Female

DRUGS (4)
  1. GLUCOVANCE [Suspect]
     Dosage: DOSING STRENGTH = 5MG(MEFORMIN HCL)/500MG(GLIBENCLAMIDE)
     Route: 048
     Dates: start: 20070807, end: 20071003
  2. COMPETACT [Suspect]
     Dosage: DOSAGE STRENGTH: 15 MG(METFORMIN HCL)/850 MG(PIOGLITAZONE HCL)TABLET.
     Route: 048
     Dates: start: 20070807, end: 20071003
  3. SPIROCTAN [Suspect]
     Indication: HYPERTENSION
     Dosage: DOSAGE FORM - CAPSULE
     Route: 048
     Dates: end: 20071003
  4. PHYSIOTENS [Suspect]
     Indication: HYPERTENSION
     Dosage: DOSAGE FORM = TABLET
     Route: 048
     Dates: end: 20071003

REACTIONS (6)
  - CELL DEATH [None]
  - CHOLELITHIASIS [None]
  - PANCREATITIS ACUTE [None]
  - RENAL FAILURE ACUTE [None]
  - RESPIRATORY FAILURE [None]
  - SEPTIC SHOCK [None]
